FAERS Safety Report 21948139 (Version 3)
Quarter: 2023Q2

REPORT INFORMATION
  Report Type: Spontaneous
  Country: US (occurrence: US)
  Receive Date: 20230203
  Receipt Date: 20230403
  Transmission Date: 20230722
  Serious: No
  Sender: FDA-Public Use
  Company Number: US-GBT-019817

PATIENT
  Age: 5 Year
  Sex: Female

DRUGS (3)
  1. OXBRYTA [Suspect]
     Active Substance: VOXELOTOR
     Indication: Sickle cell disease
     Route: 048
     Dates: start: 20230111
  2. HYDROXYUREA [Concomitant]
     Active Substance: HYDROXYUREA
  3. FOLIC ACID [Concomitant]
     Active Substance: FOLIC ACID

REACTIONS (1)
  - Rash [Recovered/Resolved]

NARRATIVE: CASE EVENT DATE: 20230101
